FAERS Safety Report 20949588 (Version 2)
Quarter: 2025Q2

REPORT INFORMATION
  Report Type: Spontaneous
  Country: DE (occurrence: DE)
  Receive Date: 20220613
  Receipt Date: 20250622
  Transmission Date: 20250716
  Serious: Yes (Hospitalization)
  Sender: AUROBINDO
  Company Number: DE-TEVA-2022-DE-2039217

PATIENT
  Age: 38 Year
  Sex: Female

DRUGS (9)
  1. AMISULPRIDE [Suspect]
     Active Substance: AMISULPRIDE
     Indication: Schizophrenia
     Dosage: 600 MILLIGRAM, ONCE A DAY
     Route: 065
  2. CLOZAPINE [Suspect]
     Active Substance: CLOZAPINE
     Indication: Schizophrenia
     Dosage: 200 MILLIGRAM, ONCE A DAY
     Route: 065
  3. OLANZAPINE [Suspect]
     Active Substance: OLANZAPINE
     Indication: Schizophrenia
     Dosage: 10 MILLIGRAM, ONCE A DAY
     Route: 065
  4. QUETIAPINE [Suspect]
     Active Substance: QUETIAPINE
     Indication: Schizophrenia
     Route: 065
  5. RAMIPRIL [Suspect]
     Active Substance: RAMIPRIL
     Indication: Schizophrenia
     Route: 065
  6. BENPERIDOL [Suspect]
     Active Substance: BENPERIDOL
     Indication: Schizophrenia
     Route: 065
  7. BENPERIDOL [Suspect]
     Active Substance: BENPERIDOL
     Route: 065
  8. ASPIRIN [Suspect]
     Active Substance: ASPIRIN
     Indication: Schizophrenia
     Route: 065
  9. CARIPRAZINE [Concomitant]
     Active Substance: CARIPRAZINE
     Indication: Schizophrenia
     Route: 065

REACTIONS (5)
  - Extrapyramidal disorder [Unknown]
  - Memory impairment [Unknown]
  - Psychotic disorder [Unknown]
  - Affective disorder [Unknown]
  - Drug ineffective [Unknown]
